FAERS Safety Report 6992721-1 (Version None)
Quarter: 2010Q3

REPORT INFORMATION
  Report Type: 
  Country: None (occurrence: None)
  Receive Date: 20100917
  Receipt Date: 20100909
  Transmission Date: 20110219
  Serious: Yes (Hospitalization)
  Sender: FDA-Public Use
  Company Number: FR-PURDUE-GBR-2010-0007041

PATIENT
  Sex: Female

DRUGS (6)
  1. OXYCONTIN [Suspect]
     Indication: PRODUCT USED FOR UNKNOWN INDICATION
     Dosage: UNK
     Route: 048
     Dates: start: 20091023, end: 20091126
  2. OXYNORM CAPSULES 5 MG [Suspect]
     Indication: PRODUCT USED FOR UNKNOWN INDICATION
     Dosage: UNK
     Route: 048
     Dates: start: 20091121, end: 20091126
  3. OXYNORM CAPSULES 5 MG [Suspect]
     Dosage: UNK
     Route: 048
     Dates: start: 20091006, end: 20091017
  4. HYDROMORPHONE HCL [Suspect]
     Indication: PRODUCT USED FOR UNKNOWN INDICATION
     Dosage: UNK
     Route: 048
     Dates: start: 20091215, end: 20091228
  5. DURAGESIC-100 [Suspect]
     Indication: PRODUCT USED FOR UNKNOWN INDICATION
     Dosage: 25 MCG, Q1H
     Route: 062
     Dates: start: 20091229, end: 20100104
  6. DURAGESIC-100 [Suspect]
     Dosage: 25 MCG, Q1H
     Route: 062
     Dates: start: 20091126, end: 20091205

REACTIONS (2)
  - CONFUSIONAL STATE [None]
  - EUPHORIC MOOD [None]
